FAERS Safety Report 23295441 (Version 1)
Quarter: 2023Q4

REPORT INFORMATION
  Report Type: Spontaneous
  Country: US (occurrence: US)
  Receive Date: 20231214
  Receipt Date: 20231214
  Transmission Date: 20240110
  Serious: No
  Sender: FDA-Public Use
  Company Number: US-ALVOGEN-2023091454

PATIENT
  Sex: Female
  Weight: 55 kg

DRUGS (1)
  1. FENTANYL [Suspect]
     Active Substance: FENTANYL\FENTANYL CITRATE
     Indication: Product used for unknown indication

REACTIONS (7)
  - Headache [Not Recovered/Not Resolved]
  - Nausea [Recovered/Resolved with Sequelae]
  - Dyspnoea [Unknown]
  - Device malfunction [Unknown]
  - Wrong technique in device usage process [Unknown]
  - Blood pressure decreased [Unknown]
  - Decreased appetite [Not Recovered/Not Resolved]
